FAERS Safety Report 21794444 (Version 1)
Quarter: 2022Q4

REPORT INFORMATION
  Report Type: Spontaneous
  Country: US (occurrence: None)
  Receive Date: 20221223
  Receipt Date: 20221223
  Transmission Date: 20230113
  Serious: No
  Sender: FDA-Public Use
  Company Number: None

PATIENT

DRUGS (2)
  1. CEFTRIAXONE [Suspect]
     Active Substance: CEFTRIAXONE
  2. CEFTRIAXONE [Suspect]
     Active Substance: CEFTRIAXONE

REACTIONS (6)
  - Product dispensing error [None]
  - Product dispensing error [None]
  - Product dose omission issue [None]
  - Medication error [None]
  - Treatment delayed [None]
  - Drug monitoring procedure not performed [None]
